FAERS Safety Report 9209679 (Version 1)
Quarter: 2013Q1

REPORT INFORMATION
  Report Type: Spontaneous
  Country: US (occurrence: None)
  Receive Date: 20120820
  Receipt Date: 20120820
  Transmission Date: 20140127
  Serious: No
  Sender: FDA-Public Use
  Company Number: 1000030022

PATIENT
  Age: 51 Year
  Sex: Female

DRUGS (5)
  1. VIIBRYD [Suspect]
     Indication: DEPRESSION
     Route: 048
     Dates: start: 201202
  2. LISINOPRIL (LISINOPRIL) (LISINOPRIL) [Concomitant]
  3. HYDROCHLOROTHIAZIDE (HYDROCHLOROTHIAZIDE) (HYDROCHLOROTHIAZIDE) [Concomitant]
  4. AMBIEN (ZOLPIDEM TARTRATE) (ZLOPIDEM TARTRATE) (ZOLPIDEM TARTRATE) [Concomitant]
  5. RESTORIL (TEMAZEPAM) (TEMAZEPAM) [Concomitant]

REACTIONS (1)
  - Loss of libido [None]
